FAERS Safety Report 11915537 (Version 1)
Quarter: 2016Q1

REPORT INFORMATION
  Report Type: Spontaneous
  Country: US (occurrence: US)
  Receive Date: 20160114
  Receipt Date: 20160114
  Transmission Date: 20160526
  Serious: No
  Sender: FDA-Public Use
  Company Number: US-ASTRAZENECA-2016SE02690

PATIENT
  Age: 30 Year
  Sex: Male
  Weight: 131.5 kg

DRUGS (13)
  1. LITHIUM. [Concomitant]
     Active Substance: LITHIUM
     Indication: MENTAL DISORDER
     Route: 048
     Dates: start: 201507
  2. QUETIAPINE [Suspect]
     Active Substance: QUETIAPINE
     Indication: BIPOLAR I DISORDER
     Route: 048
     Dates: start: 2005
  3. LITHIUM. [Concomitant]
     Active Substance: LITHIUM
     Indication: BIPOLAR DISORDER
     Route: 048
     Dates: start: 201507
  4. LITHIUM. [Concomitant]
     Active Substance: LITHIUM
     Indication: MENTAL DISORDER
     Route: 048
     Dates: start: 201507
  5. LITHIUM. [Concomitant]
     Active Substance: LITHIUM
     Indication: SCHIZOPHRENIA
     Route: 048
     Dates: start: 201507
  6. BENZTROPINE [Concomitant]
     Active Substance: BENZTROPINE
     Indication: ANXIETY
     Route: 048
     Dates: start: 2005
  7. TRINTELLIX [Concomitant]
     Active Substance: VORTIOXETINE HYDROBROMIDE
     Route: 048
     Dates: start: 2005
  8. BUSPIRONE [Concomitant]
     Active Substance: BUSPIRONE HYDROCHLORIDE
     Indication: ANXIETY
     Route: 048
     Dates: start: 201507
  9. HALOPERIDOL. [Concomitant]
     Active Substance: HALOPERIDOL
     Indication: SCHIZOPHRENIA
     Route: 050
     Dates: start: 2005
  10. QUETIAPINE [Suspect]
     Active Substance: QUETIAPINE
     Indication: SCHIZOPHRENIA
     Route: 048
     Dates: start: 2005
  11. LITHIUM. [Concomitant]
     Active Substance: LITHIUM
     Indication: SCHIZOPHRENIA
     Route: 048
     Dates: start: 201507
  12. LITHIUM. [Concomitant]
     Active Substance: LITHIUM
     Indication: BIPOLAR DISORDER
     Route: 048
     Dates: start: 201507
  13. BENZTROPINE [Concomitant]
     Active Substance: BENZTROPINE
     Indication: TREMOR
     Route: 048
     Dates: start: 2005

REACTIONS (11)
  - Apathy [Unknown]
  - Alcohol abuse [Unknown]
  - Confusional state [Unknown]
  - Fat tissue increased [Unknown]
  - Tremor [Unknown]
  - Weight increased [Unknown]
  - Candida infection [Unknown]
  - Swelling face [Unknown]
  - Asthenia [Unknown]
  - Nervousness [Unknown]
  - Fatigue [Unknown]

NARRATIVE: CASE EVENT DATE: 2005
